FAERS Safety Report 9612775 (Version 2)
Quarter: 2013Q4

REPORT INFORMATION
  Report Type: Report from Study
  Country: BR (occurrence: BR)
  Receive Date: 20131010
  Receipt Date: 20131011
  Transmission Date: 20140711
  Serious: Yes (Other)
  Sender: FDA-Public Use
  Company Number: PHHY2013BR111515

PATIENT
  Age: 69 Year
  Sex: Male

DRUGS (7)
  1. DIOVAN [Suspect]
     Indication: HYPERTENSION
     Dosage: 320 MG, UNK
  2. SALMETEROL/FLUTICASONPROPIONAAT [Concomitant]
     Dosage: 1 DF, UNK (50/250 UG)
  3. COMBIVENT [Concomitant]
     Dosage: 2 PUFFS SOS
  4. SERETIDE [Concomitant]
     Dosage: 1 DF, UNK (250/50 MCG 12/12 H)
  5. TEOLONG [Concomitant]
     Dosage: 300 MG, UNK (12/12 H)
  6. SPIRIVA [Concomitant]
     Dosage: 16 UG, UNK
  7. FLUIMUCIL [Concomitant]
     Dosage: 600 MG, UNK

REACTIONS (14)
  - Lung disorder [Unknown]
  - Lung hyperinflation [Unknown]
  - Breath sounds abnormal [Unknown]
  - Peak expiratory flow rate abnormal [Unknown]
  - Vital capacity decreased [Unknown]
  - Hypertensive crisis [Unknown]
  - Snoring [Unknown]
  - Hypopnoea [Unknown]
  - Sleep apnoea syndrome [Unknown]
  - Respiratory tract infection [Unknown]
  - Dyspnoea [Unknown]
  - Cardiac failure [Unknown]
  - Oedema peripheral [Unknown]
  - Blood pressure systolic increased [Unknown]
